FAERS Safety Report 23411918 (Version 1)
Quarter: 2024Q1

REPORT INFORMATION
  Report Type: Spontaneous
  Country: US (occurrence: US)
  Receive Date: 20240117
  Receipt Date: 20240117
  Transmission Date: 20240410
  Serious: No
  Sender: FDA-Public Use
  Company Number: US-Millicent Holdings Ltd.-MILL20240011

PATIENT
  Age: 71 Year
  Sex: Female

DRUGS (1)
  1. FEMRING [Suspect]
     Active Substance: ESTRADIOL ACETATE
     Indication: Product used for unknown indication
     Dosage: 0.05 MG/DAY, UNKNOWN
     Route: 067
     Dates: start: 2014

REACTIONS (1)
  - Blood copper increased [Not Recovered/Not Resolved]

NARRATIVE: CASE EVENT DATE: 20230925
